FAERS Safety Report 20424643 (Version 11)
Quarter: 2022Q2

REPORT INFORMATION
  Report Type: Report from Study
  Country: ES (occurrence: ES)
  Receive Date: 20220203
  Receipt Date: 20220627
  Transmission Date: 20220720
  Serious: Yes (Hospitalization, Other)
  Sender: FDA-Public Use
  Company Number: ES-CELLTRION INC.-2022ES000812

PATIENT

DRUGS (21)
  1. TRASTUZUMAB [Suspect]
     Active Substance: TRASTUZUMAB
     Indication: Breast cancer
     Dosage: EVERY 3 WEEKS; LOADING DOSE OF 8 MG/KG I.V. THEN 6 MG/KG I.V. LAST DOSE BEFORE SAE 02/12/2021, DOSE:
     Route: 041
     Dates: start: 20211111
  2. CARBOPLATIN [Suspect]
     Active Substance: CARBOPLATIN
     Indication: Breast cancer
     Dosage: DOSE: 185, LAST DOSE BEFORE SAE 09/03/2022 AT AUC 2 I.V. ON DAY 1 AND DAY 8,
     Route: 042
     Dates: start: 20211111
  3. PACLITAXEL [Suspect]
     Active Substance: PACLITAXEL
     Indication: Breast cancer
     Dosage: DOSE: 140, LAST DOSE BEFORE SAE 09/12/2021 AT 90 MG/M2
     Route: 042
     Dates: start: 20211111
  4. PERTUZUMAB [Suspect]
     Active Substance: PERTUZUMAB
     Indication: Breast cancer
     Dosage: EVERY 3 WEEKS, DOSE: 420, LAST DOSE BEFORE SAE 02/12/2021 LOADING DOSE OF 840 MG IV., THEN 420 MG I.
     Route: 042
     Dates: start: 20211111
  5. PHESGO [Suspect]
     Active Substance: HYALURONIDASE-ZZXF\PERTUZUMAB\TRASTUZUMAB
     Indication: Breast cancer
     Dosage: 600 MG (LAST DOSE BEFORE SAE:02/03/2022)
     Route: 058
     Dates: start: 20220119
  6. ATEZOLIZUMAB [Suspect]
     Active Substance: ATEZOLIZUMAB
     Indication: Breast cancer
     Dosage: EVERY 3 WEEKS, DOSE: 1200 LAST DOSE BEFORE SAE 02/12/2021
     Route: 041
     Dates: start: 20211111
  7. OMEPRAZOLE [Concomitant]
     Active Substance: OMEPRAZOLE
     Dosage: 40 MILLIGRAM
     Route: 042
     Dates: start: 20211216
  8. OMEPRAZOLE [Concomitant]
     Active Substance: OMEPRAZOLE
     Dosage: UNK
     Dates: start: 20220509, end: 20220526
  9. GANCICLOVIR [Concomitant]
     Active Substance: GANCICLOVIR
     Dosage: 600 MG
     Dates: start: 20220126, end: 20220204
  10. ACETAMINOPHEN [Concomitant]
     Active Substance: ACETAMINOPHEN
  11. METHYLPREDNISOLONE [Concomitant]
     Active Substance: METHYLPREDNISOLONE
     Dosage: 80 MILLIGRAM
     Route: 042
     Dates: start: 20211222, end: 20211222
  12. METHYLPREDNISOLONE [Concomitant]
     Active Substance: METHYLPREDNISOLONE
     Dosage: 60 MILLIGRAM
     Route: 042
     Dates: start: 20211217
  13. METHYLPREDNISOLONE [Concomitant]
     Active Substance: METHYLPREDNISOLONE
     Dosage: 60 MILLIGRAM
     Route: 042
     Dates: start: 20220126, end: 20220207
  14. METHYLPREDNISOLONE [Concomitant]
     Active Substance: METHYLPREDNISOLONE
     Dosage: 40 MILLIGRAM
     Route: 042
     Dates: start: 20211221, end: 20211221
  15. LOPERAMIDE [Concomitant]
     Active Substance: LOPERAMIDE
     Dosage: 16 MG
     Route: 048
     Dates: start: 20211211, end: 20211214
  16. PRIMPERAN [Concomitant]
     Active Substance: METOCLOPRAMIDE HYDROCHLORIDE
  17. LORAZEPAM [Concomitant]
     Active Substance: LORAZEPAM
     Dosage: UNK
     Dates: start: 20220509, end: 20220526
  18. DEFLAZACORT [Concomitant]
     Active Substance: DEFLAZACORT
     Dosage: UNK
     Dates: start: 20220208, end: 20220219
  19. ENOXAPARIN SODIUM [Concomitant]
     Active Substance: ENOXAPARIN SODIUM
     Dosage: 40 MILLIGRAM, DAILY
     Route: 058
     Dates: start: 20211217
  20. ENOXAPARIN SODIUM [Concomitant]
     Active Substance: ENOXAPARIN SODIUM
     Dosage: UNK
     Dates: start: 20220509, end: 20220510
  21. MEROPENEM [Concomitant]
     Active Substance: MEROPENEM
     Dosage: 3 G
     Dates: start: 20220126, end: 20220131

REACTIONS (4)
  - Rectal haemorrhage [Recovered/Resolved]
  - Colitis [Recovered/Resolved]
  - Diarrhoea [Recovered/Resolved]
  - Diarrhoea [Recovered/Resolved]

NARRATIVE: CASE EVENT DATE: 20211214
